FAERS Safety Report 16009019 (Version 1)
Quarter: 2019Q1

REPORT INFORMATION
  Report Type: Spontaneous
  Country: DK (occurrence: DK)
  Receive Date: 20190224
  Receipt Date: 20190224
  Transmission Date: 20190418
  Serious: Yes (Death, Hospitalization)
  Sender: FDA-Public Use
  Company Number: DK-009507513-1902DNK007794

PATIENT
  Age: 71 Year
  Sex: Female

DRUGS (8)
  1. KEYTRUDA [Suspect]
     Active Substance: PEMBROLIZUMAB
     Indication: NON-SMALL CELL LUNG CANCER
     Dosage: STRENGTH: 50 MILLIGRAMS (MG)
     Route: 042
     Dates: start: 20170526, end: 201810
  2. CETIRIZINE HYDROCHLORIDE. [Concomitant]
     Active Substance: CETIRIZINE HYDROCHLORIDE
     Indication: PRURITUS
     Dosage: STRENGTH: 10 MG
     Route: 048
     Dates: start: 20180226
  3. LEVOTHYROXINE SODIUM. [Concomitant]
     Active Substance: LEVOTHYROXINE SODIUM
     Indication: HYPOTHYROIDISM
     Dosage: STRENGTH: 50 MICROGRAMS (MCG)
     Route: 048
     Dates: start: 20171120
  4. BETAMETHASONE. [Concomitant]
     Active Substance: BETAMETHASONE
     Indication: ECZEMA
     Dosage: STRENGTH: 1 MG/G
     Route: 003
     Dates: start: 20180815
  5. CITALOPRAM [Concomitant]
     Active Substance: CITALOPRAM HYDROBROMIDE
     Indication: ANXIETY
     Dosage: STRENGTH: 20 MG
     Route: 048
     Dates: start: 20170516
  6. LORAZEPAM. [Concomitant]
     Active Substance: LORAZEPAM
     Indication: SEDATIVE THERAPY
     Dosage: DOSE: 1 (ONE) TABLET AS NECESSARY, MAXIMUM 3 (THREE) TIMES DAILY. STRENGTH: 1 MG
     Route: 048
     Dates: start: 20161220
  7. ZOPICLONE [Concomitant]
     Active Substance: ZOPICLONE
     Indication: INSOMNIA
     Dosage: STRENGTH: 7.5 MG
     Route: 048
     Dates: start: 20170530
  8. CALCIUM (UNSPECIFIED) (+) VITAMIN D (UNSPECIFIED) [Concomitant]
     Active Substance: CALCIUM CARBONATE\VITAMIN D
     Indication: MINERAL SUPPLEMENTATION
     Dosage: STRENGTH: 500 MG + 10 MCG
     Route: 048
     Dates: start: 20170530

REACTIONS (3)
  - Mechanical ventilation [Not Recovered/Not Resolved]
  - Respiratory failure [Fatal]
  - Pneumonitis [Fatal]

NARRATIVE: CASE EVENT DATE: 201901
